FAERS Safety Report 8301285-1 (Version None)
Quarter: 2012Q2

REPORT INFORMATION
  Report Type: 
  Country: None (occurrence: None)
  Receive Date: 20120420
  Receipt Date: 20120411
  Transmission Date: 20120825
  Serious: Yes (Other)
  Sender: FDA-Public Use
  Company Number: RO-ASTRAZENECA-2012SE24246

PATIENT
  Age: 12584 Day
  Sex: Female
  Weight: 65 kg

DRUGS (4)
  1. DESLORATADINE [Concomitant]
     Indication: ASTHMA
     Route: 048
     Dates: start: 20120326
  2. SYMBICORT [Suspect]
     Indication: ASTHMA
     Dosage: 160/4,5 MCG TWO TIMES A DAY
     Route: 055
     Dates: start: 20120326, end: 20120328
  3. DESLORATADINE [Concomitant]
     Indication: RHINITIS ALLERGIC
     Route: 048
     Dates: start: 20120326
  4. VENTOLIN [Concomitant]
     Indication: ASTHMA
     Route: 048
     Dates: start: 19980101

REACTIONS (2)
  - COUGH [None]
  - SUFFOCATION FEELING [None]
